FAERS Safety Report 15164067 (Version 2)
Quarter: 2018Q3

REPORT INFORMATION
  Report Type: Spontaneous
  Country: IT (occurrence: IT)
  Receive Date: 20180719
  Receipt Date: 20180808
  Transmission Date: 20181010
  Serious: Yes (Hospitalization)
  Sender: FDA-Public Use
  Company Number: IT-ADIENNEP-2018AD000401

PATIENT
  Age: 11 Year
  Sex: Female
  Weight: 71 kg

DRUGS (20)
  1. ENAPREN [Concomitant]
     Active Substance: ENALAPRIL MALEATE
     Dosage: 5 MG
  2. ALOXI [Concomitant]
     Active Substance: PALONOSETRON HYDROCHLORIDE
  3. ENDOXAN [Suspect]
     Active Substance: CYCLOPHOSPHAMIDE
     Indication: ALLOGENIC BONE MARROW TRANSPLANTATION THERAPY
     Dosage: 3300 MG DAILY
     Route: 042
     Dates: start: 20171113, end: 20171114
  4. ACICLOVIR [Concomitant]
     Active Substance: ACYCLOVIR
     Dosage: 2400 MG
     Route: 048
     Dates: start: 20171110, end: 20171113
  5. URSODEOXYCHOLIC ACID [Concomitant]
     Active Substance: URSODIOL
  6. ACICLOVIR [Concomitant]
     Active Substance: ACYCLOVIR
     Dosage: 1800 MG
     Route: 042
     Dates: start: 20171114, end: 20171211
  7. TACHIPIRINA [Concomitant]
     Active Substance: ACETAMINOPHEN
     Dosage: 1000 MG
     Route: 048
  8. THIOTEPA. [Suspect]
     Active Substance: THIOTEPA
     Indication: ALLOGENIC BONE MARROW TRANSPLANTATION THERAPY
     Dosage: 275 MG DAILY
     Route: 042
     Dates: start: 20171111, end: 20171112
  9. NYSTATIN. [Concomitant]
     Active Substance: NYSTATIN
     Dosage: 15 ML
     Route: 048
  10. FLUCONAZOLE. [Concomitant]
     Active Substance: FLUCONAZOLE
  11. SANDIMMUN [Concomitant]
     Active Substance: CYCLOSPORINE
     Dosage: 180 MG
  12. LASIX [Concomitant]
     Active Substance: FUROSEMIDE
     Dosage: 108 MG
     Route: 042
  13. UROMITEXAN [Concomitant]
     Active Substance: MESNA
     Dosage: 1100 MG
     Route: 042
  14. URBASON [Concomitant]
     Active Substance: METHYLPREDNISOLONE
     Dosage: 40 MG
     Route: 042
  15. TRIMETON [Concomitant]
     Active Substance: CHLORPHENIRAMINE MALEATE
     Dosage: 2 DF
  16. ANTITHYMOCYTE IMMUNOGLOBULIN (RABBIT) [Suspect]
     Active Substance: LAPINE T-LYMPHOCYTE IMMUNE GLOBULIN
     Indication: ALLOGENIC BONE MARROW TRANSPLANTATION THERAPY
     Dosage: 137.5 MG DAILY
     Dates: start: 20171113, end: 20171115
  17. RANITIDINE. [Concomitant]
     Active Substance: RANITIDINE
     Dosage: 150 MG
     Route: 042
  18. CIPROFLOXACIN. [Concomitant]
     Active Substance: CIPROFLOXACIN
     Dosage: 1000 MG
     Route: 048
     Dates: start: 20171110, end: 20171115
  19. ANTRA [Concomitant]
     Active Substance: OMEPRAZOLE
     Dosage: 40 MG
     Route: 042
  20. EMEND [Concomitant]
     Active Substance: APREPITANT
     Route: 048
     Dates: start: 20171111, end: 20171113

REACTIONS (6)
  - Pyrexia [Recovered/Resolved]
  - Oropharyngeal pain [Recovered/Resolved]
  - Chest pain [Recovered/Resolved]
  - Hyperaemia [Recovered/Resolved]
  - Back pain [Recovered/Resolved]
  - Breath sounds abnormal [Recovered/Resolved]

NARRATIVE: CASE EVENT DATE: 20171114
